FAERS Safety Report 15126154 (Version 3)
Quarter: 2018Q3

REPORT INFORMATION
  Report Type: Report from Study
  Country: US (occurrence: US)
  Receive Date: 20180710
  Receipt Date: 20180831
  Transmission Date: 20181010
  Serious: No
  Sender: FDA-Public Use
  Company Number: PHEH2018US028129

PATIENT
  Age: 68 Year
  Sex: Female

DRUGS (1)
  1. GILENYA [Suspect]
     Active Substance: FINGOLIMOD HYDROCHLORIDE
     Indication: PRODUCT USED FOR UNKNOWN INDICATION
     Dosage: UNK
     Route: 065
     Dates: start: 20170223

REACTIONS (2)
  - Anxiety [Unknown]
  - Central nervous system lesion [Unknown]

NARRATIVE: CASE EVENT DATE: 20171201
